FAERS Safety Report 12663522 (Version 1)
Quarter: 2016Q3

REPORT INFORMATION
  Report Type: Spontaneous
  Country: GB (occurrence: GB)
  Receive Date: 20160818
  Receipt Date: 20160818
  Transmission Date: 20161109
  Serious: Yes (Disabling, Other)
  Sender: FDA-Public Use
  Company Number: GB-TEVA-683496ACC

PATIENT
  Age: 76 Year
  Sex: Male
  Weight: 74.83 kg

DRUGS (12)
  1. MAGNESIUM [Concomitant]
     Active Substance: MAGNESIUM
  2. PARACETAMOL [Concomitant]
     Active Substance: ACETAMINOPHEN
  3. TAMSULOSIN [Concomitant]
     Active Substance: TAMSULOSIN
  4. GABAPENTIN. [Suspect]
     Active Substance: GABAPENTIN
     Indication: ESSENTIAL TREMOR
     Dosage: 600 MILLIGRAM DAILY;
     Route: 048
     Dates: start: 20151014, end: 20160205
  5. FINASTERIDE. [Concomitant]
     Active Substance: FINASTERIDE
  6. VITAMIN C [Concomitant]
     Active Substance: ASCORBIC ACID
  7. WARFARIN [Concomitant]
     Active Substance: WARFARIN
  8. CALCIUM [Concomitant]
     Active Substance: CALCIUM
  9. FLECAINIDE [Concomitant]
     Active Substance: FLECAINIDE
  10. VITAMIN D [Concomitant]
     Active Substance: CHOLECALCIFEROL
  11. CLENIL MODULITE [Concomitant]
     Active Substance: BECLOMETHASONE DIPROPIONATE
  12. SALAMOL [Concomitant]
     Active Substance: ALBUTEROL

REACTIONS (1)
  - Limb discomfort [Recovered/Resolved]

NARRATIVE: CASE EVENT DATE: 20160128
